FAERS Safety Report 16101019 (Version 3)
Quarter: 2019Q2

REPORT INFORMATION
  Report Type: Spontaneous
  Country: SE (occurrence: SE)
  Receive Date: 20190318
  Receipt Date: 20190517
  Transmission Date: 20190711
  Serious: No
  Sender: FDA-Public Use
  Company Number: SE-B.I. PHARMACEUTICALS,INC./RIDGEFIELD-2019-12-000814

PATIENT
  Age: 72 Year
  Sex: Male

DRUGS (4)
  1. JARDIANCE [Suspect]
     Active Substance: EMPAGLIFLOZIN
     Indication: DIABETES MELLITUS
     Dosage: 10.0 MG?1X1TV FORM FILMDRAGERAD TABLETT
     Route: 065
     Dates: start: 20190117
  2. VICTOZA [Concomitant]
     Active Substance: LIRAGLUTIDE
     Indication: PRODUCT USED FOR UNKNOWN INDICATION
     Dosage: 6.0 MG/ML?1,8X1TV FORM INJEKTIONSVATSKA, L?SNING I F?RFYLLD INJEKTIONSPE.
     Route: 065
     Dates: start: 20180607
  3. LOSARTAN AND HYDROCHLOROTHIAZIDE [Concomitant]
     Active Substance: HYDROCHLOROTHIAZIDE\LOSARTAN POTASSIUM
     Indication: PRODUCT USED FOR UNKNOWN INDICATION
     Dosage: ?1X1TV, FILMDRAGERAD TABLETT
     Route: 065
     Dates: start: 20181204
  4. SIMVASTATIN KRKA [Concomitant]
     Active Substance: SIMVASTATIN
     Indication: PRODUCT USED FOR UNKNOWN INDICATION
     Dosage: 20.0 MG?1TNTV , FILMDRAGERAD TABLETT
     Route: 065
     Dates: start: 20190116

REACTIONS (3)
  - Dry mouth [Unknown]
  - Hallucination [Recovered/Resolved]
  - Micturition urgency [Unknown]

NARRATIVE: CASE EVENT DATE: 2019
